FAERS Safety Report 13333962 (Version 1)
Quarter: 2017Q1

REPORT INFORMATION
  Report Type: Spontaneous
  Country: US (occurrence: US)
  Receive Date: 20170314
  Receipt Date: 20170314
  Transmission Date: 20170428
  Serious: Yes (Other)
  Sender: FDA-Public Use
  Company Number: US-ELI_LILLY_AND_COMPANY-US201703003917

PATIENT
  Sex: Female
  Weight: 117.9 kg

DRUGS (1)
  1. CYMBALTA [Suspect]
     Active Substance: DULOXETINE HYDROCHLORIDE
     Indication: PRODUCT USED FOR UNKNOWN INDICATION
     Dosage: UNK, UNKNOWN
     Route: 065
     Dates: start: 2012

REACTIONS (6)
  - Pain [Unknown]
  - Cerebral disorder [Unknown]
  - Suicidal ideation [Unknown]
  - Intentional product misuse [Unknown]
  - Gait disturbance [Unknown]
  - Tremor [Unknown]
